FAERS Safety Report 6077083-9 (Version None)
Quarter: 2009Q1

REPORT INFORMATION
  Report Type: 
  Country: None (occurrence: None)
  Receive Date: 20090213
  Receipt Date: 20090206
  Transmission Date: 20090719
  Serious: Yes (Other)
  Sender: FDA-Public Use
  Company Number: JP-NOVOPROD-283941

PATIENT
  Age: 3 Year
  Sex: Male
  Weight: 10 kg

DRUGS (2)
  1. NORDITROPIN NORDIFLEX [Suspect]
     Indication: GROWTH HORMONE DEFICIENCY
     Dosage: UNKNOWN
     Route: 058
     Dates: start: 20081203, end: 20090129
  2. NORDITROPIN NORDIFLEX [Suspect]
     Dosage: UNKNOWN (LOWER DOSE)
     Dates: start: 20090204

REACTIONS (1)
  - OSTEOCHONDROSIS [None]
